FAERS Safety Report 16230715 (Version 2)
Quarter: 2020Q1

REPORT INFORMATION
  Report Type: Spontaneous
  Country: US (occurrence: US)
  Receive Date: 20190423
  Receipt Date: 20200302
  Transmission Date: 20200409
  Serious: No
  Sender: FDA-Public Use
  Company Number: US-ACTELION-A-NJ2019-188175

PATIENT
  Sex: Female

DRUGS (2)
  1. OPSUMIT [Suspect]
     Active Substance: MACITENTAN
     Indication: PULMONARY ARTERIAL HYPERTENSION
     Dosage: 10 MG, QD
     Route: 048
     Dates: start: 20180917
  2. METOPROLOL. [Concomitant]
     Active Substance: METOPROLOL

REACTIONS (5)
  - Pulmonary fibrosis [Unknown]
  - Pulmonary arterial hypertension [Unknown]
  - Heart rate increased [Unknown]
  - Condition aggravated [Unknown]
  - Urinary tract infection [Unknown]
